FAERS Safety Report 6110266-8 (Version None)
Quarter: 2009Q1

REPORT INFORMATION
  Report Type: 
  Country: None (occurrence: None)
  Receive Date: 20090309
  Receipt Date: 20090309
  Transmission Date: 20090719
  Serious: Yes (Life-Threatening)
  Sender: FDA-Public Use
  Company Number: None

PATIENT
  Age: 46 Year
  Sex: Male
  Weight: 61.2356 kg

DRUGS (1)
  1. AMBIEN [Suspect]
     Indication: INSOMNIA
     Dosage: 1 OR2 AT BEDTIME NIGHHTLY
     Dates: start: 20090220, end: 20090304

REACTIONS (13)
  - ABNORMAL BEHAVIOUR [None]
  - CHEST PAIN [None]
  - CHILLS [None]
  - DEPRESSION [None]
  - DISSOCIATION [None]
  - ILL-DEFINED DISORDER [None]
  - MANIA [None]
  - NIGHT SWEATS [None]
  - OBSESSIVE THOUGHTS [None]
  - PANIC ATTACK [None]
  - SLEEP DISORDER [None]
  - SUICIDAL IDEATION [None]
  - THINKING ABNORMAL [None]
